FAERS Safety Report 5077765-1 (Version None)
Quarter: 2006Q3

REPORT INFORMATION
  Report Type: 
  Country: None (occurrence: None)
  Receive Date: 20060807
  Receipt Date: 20060727
  Transmission Date: 20061208
  Serious: Yes (Life-Threatening, Other)
  Sender: FDA-Public Use
  Company Number: US200607001904

PATIENT
  Age: 50 Year
  Sex: Male
  Weight: 120.2 kg

DRUGS (2)
  1. CYMBALTA (DULOXETINE HYDROCHLORIE) CAPSULE [Suspect]
     Indication: NEUROPATHY PERIPHERAL
     Dosage: 30 MG, EACH EVENING,
     Dates: start: 20060101
  2. VIOXX /USA/ (ROFECOXIB) [Concomitant]

REACTIONS (4)
  - BUNDLE BRANCH BLOCK LEFT [None]
  - DILATATION ATRIAL [None]
  - MYOCARDIAL ISCHAEMIA [None]
  - VENTRICULAR HYPERTROPHY [None]
